FAERS Safety Report 23608432 (Version 1)
Quarter: 2024Q1

REPORT INFORMATION
  Report Type: Report from Study
  Country: CA (occurrence: CA)
  Receive Date: 20240307
  Receipt Date: 20240307
  Transmission Date: 20240409
  Serious: Yes (Hospitalization, Other)
  Sender: FDA-Public Use
  Company Number: CA-ABBVIE-5669294

PATIENT
  Sex: Female

DRUGS (2)
  1. HUMIRA [Suspect]
     Active Substance: ADALIMUMAB
     Indication: Crohn^s disease
     Route: 058
     Dates: start: 20161221, end: 20240211
  2. PREDNISONE [Concomitant]
     Active Substance: PREDNISONE
     Indication: Product used for unknown indication

REACTIONS (7)
  - Abdominal pain upper [Unknown]
  - Muscle spasms [Unknown]
  - Dizziness [Unknown]
  - Hypertension [Unknown]
  - Localised oedema [Unknown]
  - Hypophagia [Unknown]
  - Fluid intake reduced [Unknown]
